FAERS Safety Report 4699960-3 (Version None)
Quarter: 2005Q2

REPORT INFORMATION
  Report Type: 
  Country: None (occurrence: None)
  Receive Date: 20050627
  Receipt Date: 20050526
  Transmission Date: 20051028
  Serious: Yes (Other)
  Sender: FDA-Public Use
  Company Number: JP-BOEHRINGER INGELHEIM PHARMACEUTICALS, INC.-2005-BP-09327YA

PATIENT
  Sex: Male

DRUGS (5)
  1. HARNAL [Suspect]
     Indication: BENIGN PROSTATIC HYPERPLASIA
     Route: 048
     Dates: start: 20000112
  2. HARNAL [Suspect]
     Dosage: 0.2 MG AM
     Route: 048
     Dates: start: 20001110, end: 20001130
  3. VERAPAMIL HYDROCHLORIDE [Concomitant]
     Indication: CARDIOMYOPATHY
     Route: 048
     Dates: start: 19780101
  4. DILTIAZEM HYDROCHLORIDE [Concomitant]
     Indication: CARDIOMYOPATHY
     Route: 048
     Dates: start: 19780101
  5. UBIDECARENONE [Concomitant]
     Indication: CARDIOMYOPATHY
     Route: 048
     Dates: start: 19780101

REACTIONS (4)
  - CARDIAC FAILURE CONGESTIVE [None]
  - CONGESTIVE CARDIOMYOPATHY [None]
  - OEDEMA PERIPHERAL [None]
  - URINE FLOW DECREASED [None]
